FAERS Safety Report 24066735 (Version 10)
Quarter: 2025Q1

REPORT INFORMATION
  Report Type: Report from Study
  Country: CA (occurrence: CA)
  Receive Date: 20240709
  Receipt Date: 20250228
  Transmission Date: 20250408
  Serious: Yes (Hospitalization, Other)
  Sender: SANDOZ
  Company Number: CA-SANDOZ-SDZ2023CA017106

PATIENT
  Sex: Female
  Weight: 77.27 kg

DRUGS (5)
  1. ERELZI [Suspect]
     Active Substance: ETANERCEPT-SZZS
     Route: 058
  2. ERELZI [Suspect]
     Active Substance: ETANERCEPT-SZZS
     Indication: Psoriatic arthropathy
     Dosage: 50 MG, QW
     Route: 058
     Dates: start: 20210820
  3. ERELZI [Suspect]
     Active Substance: ETANERCEPT-SZZS
     Dosage: 50 MG, QW
     Route: 058
     Dates: start: 20231228
  4. ERELZI [Suspect]
     Active Substance: ETANERCEPT-SZZS
     Dosage: 50 MG, QW
     Route: 058
  5. LASIX [Concomitant]
     Active Substance: FUROSEMIDE
     Indication: Product used for unknown indication
     Route: 065

REACTIONS (38)
  - Anaphylactic shock [Unknown]
  - Psoriatic arthropathy [Unknown]
  - Transient ischaemic attack [Unknown]
  - Pneumonia staphylococcal [Recovered/Resolved]
  - Bronchitis [Unknown]
  - Pneumonia [Recovered/Resolved]
  - Eye pain [Unknown]
  - Feeling cold [Unknown]
  - Abdominal distension [Unknown]
  - Lethargy [Unknown]
  - Fall [Unknown]
  - Vomiting [Unknown]
  - Loss of personal independence in daily activities [Unknown]
  - Paraesthesia [Unknown]
  - Contusion [Unknown]
  - Malaise [Unknown]
  - Dyspnoea [Unknown]
  - Weight increased [Unknown]
  - Nausea [Unknown]
  - Arthralgia [Unknown]
  - Pain in extremity [Unknown]
  - Abdominal pain upper [Unknown]
  - Norovirus infection [Recovering/Resolving]
  - Musculoskeletal stiffness [Unknown]
  - Chills [Unknown]
  - Head injury [Unknown]
  - Myalgia [Not Recovered/Not Resolved]
  - Blood pressure decreased [Unknown]
  - Oropharyngeal pain [Unknown]
  - Chest pain [Unknown]
  - Urinary tract infection [Unknown]
  - Infection [Unknown]
  - Impetigo [Recovering/Resolving]
  - Vaginal infection [Unknown]
  - Tonsillitis [Unknown]
  - Injection site pain [Unknown]
  - Product availability issue [Unknown]
  - Product dose omission issue [Unknown]

NARRATIVE: CASE EVENT DATE: 20240101
